FAERS Safety Report 22247312 (Version 1)
Quarter: 2023Q2

REPORT INFORMATION
  Report Type: Spontaneous
  Country: MX (occurrence: MX)
  Receive Date: 20230425
  Receipt Date: 20230425
  Transmission Date: 20230721
  Serious: Yes (Hospitalization, Other)
  Sender: FDA-Public Use
  Company Number: MX-NOVEN PHARMACEUTICALS, INC.-2023-NOV-MX000399

PATIENT
  Age: 43 Year
  Sex: Female

DRUGS (2)
  1. ESTRADIOL [Suspect]
     Active Substance: ESTRADIOL
     Indication: Hormone replacement therapy
     Dosage: 10 MG/ML, UNKNOWN
     Route: 030
  2. ALGESTONE [Suspect]
     Active Substance: ALGESTONE
     Indication: Hormone replacement therapy
     Dosage: 150 MG/ML, UNKNOWN
     Route: 030

REACTIONS (1)
  - Glioblastoma [Recovered/Resolved with Sequelae]

NARRATIVE: CASE EVENT DATE: 20230101
